FAERS Safety Report 9339261 (Version 2)
Quarter: 2013Q3

REPORT INFORMATION
  Report Type: Spontaneous
  Country: US (occurrence: US)
  Receive Date: 20130610
  Receipt Date: 20130902
  Transmission Date: 20140515
  Serious: No
  Sender: FDA-Public Use
  Company Number: US-009507513-1306USA004031

PATIENT
  Sex: Male

DRUGS (1)
  1. SAPHRIS [Suspect]
     Dosage: 5 MG, QD
     Route: 060

REACTIONS (3)
  - Lip blister [Unknown]
  - Inappropriate schedule of drug administration [Unknown]
  - Underdose [Unknown]
